FAERS Safety Report 6278053-8 (Version None)
Quarter: 2009Q3

REPORT INFORMATION
  Report Type: 
  Country: None (occurrence: None)
  Receive Date: 20090722
  Receipt Date: 20090715
  Transmission Date: 20100115
  Serious: Yes (Other)
  Sender: FDA-Public Use
  Company Number: PHHY2009JP29527

PATIENT
  Age: 52 Year
  Sex: Female

DRUGS (4)
  1. CYCLOSPORINE [Suspect]
     Indication: RENAL TRANSPLANT
     Dosage: UNK
  2. MYCOPHENOLATE MOFETIL [Concomitant]
     Indication: RENAL TRANSPLANT
     Dosage: UNK
  3. METHYLPREDNISOLONE [Concomitant]
     Indication: RENAL TRANSPLANT
     Dosage: UNK
     Route: 048
  4. METHYLPREDNISOLONE [Concomitant]
     Dosage: 20 MG/D
     Route: 048

REACTIONS (11)
  - ANTI-NEUTROPHIL CYTOPLASMIC ANTIBODY POSITIVE VASCULITIS [None]
  - ENTEROCOLITIS [None]
  - GLOMERULONEPHRITIS [None]
  - HAEMATURIA [None]
  - HAEMODIALYSIS [None]
  - KIDNEY FIBROSIS [None]
  - PROTEINURIA [None]
  - RENAL ARTERIOSCLEROSIS [None]
  - RENAL IMPAIRMENT [None]
  - RENAL TUBULAR ATROPHY [None]
  - URINARY TRACT INFECTION [None]
